FAERS Safety Report 9343090 (Version 1)
Quarter: 2013Q2

REPORT INFORMATION
  Report Type: Spontaneous
  Country: US (occurrence: US)
  Receive Date: 20130611
  Receipt Date: 20130611
  Transmission Date: 20140414
  Serious: Yes (Other)
  Sender: FDA-Public Use
  Company Number: PHHY2011US55806

PATIENT
  Age: 49 Year
  Sex: Female

DRUGS (2)
  1. METHADONE [Suspect]
     Indication: DEPENDENCE
     Dosage: 140 MG, UNK
  2. FENTANYL [Suspect]
     Indication: MUSCULOSKELETAL PAIN
     Route: 042

REACTIONS (1)
  - Hyperaesthesia [Unknown]
